FAERS Safety Report 5283534-X (Version None)
Quarter: 2007Q1

REPORT INFORMATION
  Report Type: 
  Country: None (occurrence: None)
  Receive Date: 20061226
  Receipt Date: 20061016
  Transmission Date: 20070707
  Serious: No
  Sender: FDA-Public Use
  Company Number: 2006PV023289

PATIENT
  Age: 51 Year
  Sex: Male
  Weight: 89.3586 kg

DRUGS (3)
  1. SYMLIN [Suspect]
     Indication: DIABETES MELLITUS
     Dosage: 60 MCG; TID; SC
     Route: 058
     Dates: start: 20060320
  2. LANTUS [Concomitant]
  3. NOVOLOG [Concomitant]

REACTIONS (1)
  - BREATH ALCOHOL TEST POSITIVE [None]
